FAERS Safety Report 11414989 (Version 2)
Quarter: 2015Q3

REPORT INFORMATION
  Report Type: Report from Study
  Country: US (occurrence: US)
  Receive Date: 20150825
  Receipt Date: 20150910
  Transmission Date: 20151125
  Serious: Yes (Death, Hospitalization, Disabling)
  Sender: FDA-Public Use
  Company Number: US-ROCHE-1624325

PATIENT
  Age: 72 Year
  Sex: Female
  Weight: 57.8 kg

DRUGS (14)
  1. DEXAMETHASONE. [Concomitant]
     Active Substance: DEXAMETHASONE
     Indication: CANCER PAIN
     Route: 065
  2. PERTUZUMAB [Suspect]
     Active Substance: PERTUZUMAB
     Indication: SMALL INTESTINE CARCINOMA METASTATIC
     Route: 042
     Dates: start: 20150713
  3. RESTASIS [Concomitant]
     Active Substance: CYCLOSPORINE
     Dosage: 21DROPS
     Route: 048
  4. OXYCODONE [Concomitant]
     Active Substance: OXYCODONE
     Indication: CANCER PAIN
     Dosage: AS NEEDED
     Route: 065
  5. TRASTUZUMAB [Suspect]
     Active Substance: TRASTUZUMAB
     Dosage: DOSE IS 6 MG/KG, INFUSION (MAINTAINCE DOSE)
     Route: 042
     Dates: start: 20150803
  6. NORTRIPTYLINE [Concomitant]
     Active Substance: NORTRIPTYLINE
     Indication: NERVE COMPRESSION
     Route: 065
  7. DICYCLOMINE [Concomitant]
     Active Substance: DICYCLOMINE HYDROCHLORIDE
     Indication: IRRITABLE BOWEL SYNDROME
     Dosage: AS NEEDED
     Route: 065
  8. TRASTUZUMAB [Suspect]
     Active Substance: TRASTUZUMAB
     Indication: SMALL INTESTINE CARCINOMA METASTATIC
     Dosage: INFUSION (LOADING DOSE)
     Route: 042
     Dates: start: 20150713
  9. TYLENOL [Concomitant]
     Active Substance: ACETAMINOPHEN
     Indication: PAIN
     Dosage: 1-2 TABLET
     Route: 048
  10. GABAPENTIN. [Concomitant]
     Active Substance: GABAPENTIN
     Indication: NERVE COMPRESSION
     Route: 065
  11. VAGIFEM [Concomitant]
     Active Substance: ESTRADIOL
     Route: 065
  12. PROZAC [Concomitant]
     Active Substance: FLUOXETINE HYDROCHLORIDE
     Indication: DEPRESSION
     Dosage: DAILY
     Route: 048
  13. PERTUZUMAB [Suspect]
     Active Substance: PERTUZUMAB
     Dosage: INFUSION (MAINTAINANCE DOSE)
     Route: 042
     Dates: start: 20150803
  14. OXYCONTIN [Concomitant]
     Active Substance: OXYCODONE HYDROCHLORIDE
     Indication: CANCER PAIN
     Dosage: 2 TABLETS
     Route: 065

REACTIONS (1)
  - Sepsis [Fatal]

NARRATIVE: CASE EVENT DATE: 20150819
